FAERS Safety Report 14709070 (Version 1)
Quarter: 2018Q2

REPORT INFORMATION
  Report Type: Spontaneous
  Country: FR (occurrence: FR)
  Receive Date: 20180403
  Receipt Date: 20180403
  Transmission Date: 20180711
  Serious: Yes (Hospitalization)
  Sender: FDA-Public Use
  Company Number: FR-AUROBINDO-AUR-APL-2018-017298

PATIENT
  Age: 72 Year
  Sex: Female
  Weight: 60 kg

DRUGS (15)
  1. CLARITHROMYCIN. [Suspect]
     Active Substance: CLARITHROMYCIN
     Indication: MYCOBACTERIUM TEST POSITIVE
     Route: 048
     Dates: start: 20170426, end: 20170625
  2. LEVOTHYROX [Concomitant]
     Active Substance: LEVOTHYROXINE
     Dosage: ()
     Route: 048
  3. LOXEN L P [Concomitant]
     Active Substance: NICARDIPINE HYDROCHLORIDE
     Dosage: ()
     Route: 048
  4. UVEDOSE [Concomitant]
     Active Substance: CHOLECALCIFEROL
     Route: 048
     Dates: start: 20170426
  5. RIMIFON [Suspect]
     Active Substance: ISONIAZID
     Indication: MYCOBACTERIUM TEST POSITIVE
     Route: 048
     Dates: start: 20170426, end: 20170625
  6. FOSAMAX [Concomitant]
     Active Substance: ALENDRONATE SODIUM
     Route: 048
     Dates: start: 20170426
  7. NEBIVOLOL. [Concomitant]
     Active Substance: NEBIVOLOL
     Dosage: ()
     Route: 048
  8. PENTASA [Concomitant]
     Active Substance: MESALAMINE
     Dosage: ()
     Route: 048
  9. DEXAMBUTOL [Suspect]
     Active Substance: ETHAMBUTOL HYDROCHLORIDE
     Indication: MYCOBACTERIUM TEST POSITIVE
     Route: 048
     Dates: start: 20170426, end: 20170625
  10. PENTASA [Concomitant]
     Active Substance: MESALAMINE
     Dosage: ()
     Route: 048
  11. LEVOTHYROX [Concomitant]
     Active Substance: LEVOTHYROXINE
     Dosage: ()
     Route: 048
  12. CORTANCYL [Concomitant]
     Active Substance: PREDNISONE
     Route: 048
     Dates: start: 20170426
  13. ANSATIPINE [Interacting]
     Active Substance: RIFABUTIN
     Indication: MYCOBACTERIUM TEST POSITIVE
     Route: 048
     Dates: start: 20170426, end: 20170625
  14. NEBIVOLOL. [Concomitant]
     Active Substance: NEBIVOLOL
     Dosage: ()
     Route: 048
  15. LOXEN L P [Concomitant]
     Active Substance: NICARDIPINE HYDROCHLORIDE
     Dosage: ()
     Route: 048

REACTIONS (1)
  - Uveitis [Recovered/Resolved]

NARRATIVE: CASE EVENT DATE: 201706
